FAERS Safety Report 12013411 (Version 1)
Quarter: 2016Q1

REPORT INFORMATION
  Report Type: Spontaneous
  Country: US (occurrence: US)
  Receive Date: 20160205
  Receipt Date: 20160205
  Transmission Date: 20160526
  Serious: No
  Sender: FDA-Public Use
  Company Number: US-AMGEN-USASP2015039716

PATIENT
  Age: 79 Year
  Sex: Female

DRUGS (1)
  1. NEULASTA [Suspect]
     Active Substance: PEGFILGRASTIM
     Indication: PRODUCT USED FOR UNKNOWN INDICATION
     Dosage: UNK UNK, UNK
     Route: 065

REACTIONS (6)
  - Nausea [Unknown]
  - Lethargy [Unknown]
  - Somnolence [Unknown]
  - Vomiting [Unknown]
  - Feeling abnormal [Unknown]
  - Unevaluable event [Unknown]
